FAERS Safety Report 9452400 (Version 5)
Quarter: 2014Q2

REPORT INFORMATION
  Report Type: Spontaneous
  Country: US (occurrence: US)
  Receive Date: 20130812
  Receipt Date: 20140530
  Transmission Date: 20141212
  Serious: Yes (Hospitalization, Other)
  Sender: FDA-Public Use
  Company Number: US-ELI_LILLY_AND_COMPANY-US201308002641

PATIENT
  Age: 56 Year
  Sex: Female
  Weight: 68 kg

DRUGS (8)
  1. ZYPREXA ZYDIS [Suspect]
     Indication: SCHIZOPHRENIA
     Dosage: 25 MG, QD
     Route: 060
     Dates: start: 1998
  2. ZYPREXA ZYDIS [Interacting]
     Dosage: 35 MG, QD
     Route: 060
  3. ZYPREXA ZYDIS [Interacting]
     Dosage: 20 MG, QD
     Route: 060
     Dates: start: 200607
  4. OLANZAPINE [Interacting]
     Indication: SCHIZOPHRENIA
     Dosage: 5 MG, QD
     Route: 048
     Dates: start: 1998
  5. GEODON                             /01487002/ [Interacting]
     Indication: SCHIZOPHRENIA
     Dosage: 80 MG, QD
     Route: 065
     Dates: end: 201205
  6. GEODON                             /01487002/ [Interacting]
     Indication: WEIGHT CONTROL
     Dosage: UNK UNK, UNKNOWN
     Route: 048
     Dates: start: 201212
  7. ASPIRIN [Concomitant]
     Dosage: 325 MG, UNKNOWN
  8. CENTRUM                            /00554501/ [Concomitant]
     Dosage: UNK

REACTIONS (9)
  - Invasive ductal breast carcinoma [Recovered/Resolved]
  - Weight decreased [Unknown]
  - White blood cell count decreased [Unknown]
  - Neutrophil count decreased [Unknown]
  - Blood prolactin increased [Recovered/Resolved]
  - Platelet count decreased [Unknown]
  - Liver function test abnormal [Recovered/Resolved]
  - Drug interaction [Unknown]
  - Prescribed overdose [Not Recovered/Not Resolved]
